FAERS Safety Report 5834925-7 (Version None)
Quarter: 2008Q3

REPORT INFORMATION
  Report Type: 
  Country: None (occurrence: None)
  Receive Date: 20080801
  Receipt Date: 20080723
  Transmission Date: 20090109
  Serious: Yes (Other)
  Sender: FDA-Public Use
  Company Number: 060001L08TUR

PATIENT
  Age: 35 Year
  Sex: Female

DRUGS (2)
  1. CLOMIPHENE CITRATE [Suspect]
     Indication: INFERTILITY FEMALE
  2. CHORIONIC GONADTROPIN [Concomitant]

REACTIONS (6)
  - DIPLOPIA [None]
  - DRUG EXPOSURE DURING PREGNANCY [None]
  - HEADACHE [None]
  - HYPOTHYROIDISM [None]
  - PITUITARY TUMOUR BENIGN [None]
  - VISUAL ACUITY REDUCED [None]
